FAERS Safety Report 5934405-4 (Version None)
Quarter: 2008Q4

REPORT INFORMATION
  Report Type: 
  Country: None (occurrence: None)
  Receive Date: 20081010
  Receipt Date: 20071127
  Transmission Date: 20090506
  Serious: Yes (Hospitalization, Other)
  Sender: FDA-Public Use
  Company Number: 2007SP023847

PATIENT
  Age: 42 Year
  Sex: Male

DRUGS (6)
  1. TEMODAR [Suspect]
     Indication: ANAPLASTIC ASTROCYTOMA
     Dosage: 300 MG; PO : 400 MG; PO
     Route: 048
     Dates: start: 20030101, end: 20030101
  2. TEMODAR [Suspect]
     Indication: ANAPLASTIC ASTROCYTOMA
     Dosage: 300 MG; PO : 400 MG; PO
     Route: 048
     Dates: start: 20040101, end: 20040101
  3. KEPPRA [Concomitant]
  4. PROTONIX [Concomitant]
  5. LEXAPRO [Concomitant]
  6. BACTRIM [Concomitant]

REACTIONS (1)
  - MYELODYSPLASTIC SYNDROME [None]
